FAERS Safety Report 12966347 (Version 1)
Quarter: 2016Q4

REPORT INFORMATION
  Report Type: Spontaneous
  Country: DE (occurrence: DE)
  Receive Date: 20161122
  Receipt Date: 20161122
  Transmission Date: 20170207
  Serious: Yes (Death)
  Sender: FDA-Public Use
  Company Number: DE-TEVA-712658GER

PATIENT
  Sex: Female

DRUGS (1)
  1. LISINOPRIL-RATIOPHARM 10 MG TABLETTEN [Suspect]
     Active Substance: LISINOPRIL
     Dosage: INTAKE ON 3 DAYS AT ALL
     Route: 048

REACTIONS (4)
  - Death [Fatal]
  - Drug intolerance [Unknown]
  - Blood pressure increased [None]
  - Intentional product misuse [Unknown]

NARRATIVE: CASE EVENT DATE: 20161101
